FAERS Safety Report 11246282 (Version 1)
Quarter: 2015Q3

REPORT INFORMATION
  Report Type: Spontaneous
  Country: US (occurrence: None)
  Receive Date: 20150706
  Receipt Date: 20150706
  Transmission Date: 20151125
  Serious: No
  Sender: FDA-Public Use
  Company Number: None

PATIENT
  Sex: Female

DRUGS (1)
  1. METHOHEXITAL SODIUM [Suspect]
     Active Substance: METHOHEXITAL SODIUM

REACTIONS (2)
  - Wrong technique in product usage process [None]
  - Multiple use of single-use product [None]
